FAERS Safety Report 5604549-5 (Version None)
Quarter: 2008Q1

REPORT INFORMATION
  Report Type: 
  Country: None (occurrence: None)
  Receive Date: 20080124
  Receipt Date: 20080124
  Transmission Date: 20080703
  Serious: Yes (Other)
  Sender: FDA-Public Use
  Company Number: None

PATIENT
  Age: 26 Year
  Sex: Female
  Weight: 58.9676 kg

DRUGS (1)
  1. KARIVA [Suspect]
     Indication: CONTRACEPTION
     Dates: start: 20080106, end: 20080114

REACTIONS (5)
  - DIARRHOEA [None]
  - EMOTIONAL DISORDER [None]
  - NAUSEA [None]
  - PANIC ATTACK [None]
  - RETCHING [None]
